FAERS Safety Report 6740080-1 (Version None)
Quarter: 2010Q2

REPORT INFORMATION
  Report Type: 
  Country: None (occurrence: None)
  Receive Date: 20100525
  Receipt Date: 20091002
  Transmission Date: 20101027
  Serious: No
  Sender: FDA-Public Use
  Company Number: A0798600A

PATIENT
  Age: 85 Year
  Sex: Female

DRUGS (13)
  1. BACTROBAN [Suspect]
     Indication: CELLULITIS
     Route: 061
     Dates: start: 20090714, end: 20090714
  2. ARIMIDEX [Concomitant]
  3. LISINOPRIL [Concomitant]
  4. ACIPHEX [Concomitant]
  5. SKELAXIN [Concomitant]
  6. GABAPENTIN [Concomitant]
  7. ACETAMINOPHEN AND CODEINE PHOSPHATE [Concomitant]
  8. FUROSEMIDE [Concomitant]
  9. QUARELIN [Concomitant]
  10. COLACE [Concomitant]
  11. VITAMIN E [Concomitant]
  12. SLOW FE IRON [Concomitant]
  13. CEPHALEXIN [Concomitant]

REACTIONS (3)
  - APPLICATION SITE BURN [None]
  - APPLICATION SITE ERYTHEMA [None]
  - APPLICATION SITE PAIN [None]
